FAERS Safety Report 6167579-3 (Version None)
Quarter: 2009Q2

REPORT INFORMATION
  Report Type: 
  Country: None (occurrence: None)
  Receive Date: 20090424
  Receipt Date: 20090422
  Transmission Date: 20091009
  Serious: No
  Sender: FDA-Public Use
  Company Number: US-B.I. PHARMACEUTICALS,INC./RIDGEFIELD-2009-BP-04342BP

PATIENT
  Sex: Male

DRUGS (4)
  1. SPIRIVA [Suspect]
     Indication: ASTHMA EXERCISE INDUCED
     Dosage: 18MCG
     Route: 055
     Dates: start: 20090115
  2. SPIRIVA [Suspect]
     Indication: DYSPNOEA
  3. SIMVASTATIN [Concomitant]
     Indication: BLOOD CHOLESTEROL INCREASED
     Route: 048
  4. SYMBICORT [Concomitant]

REACTIONS (3)
  - DRY THROAT [None]
  - DYSPNOEA EXERTIONAL [None]
  - THROAT IRRITATION [None]
